FAERS Safety Report 8932615 (Version 1)
Quarter: 2012Q4

REPORT INFORMATION
  Report Type: Spontaneous
  Country: NL (occurrence: None)
  Receive Date: 20121119
  Receipt Date: 20121119
  Transmission Date: 20130627
  Serious: Yes (Hospitalization)
  Sender: FDA-Public Use
  Company Number: 1481760

PATIENT
  Age: 42 Year
  Sex: Female
  Weight: 38.56 kg

DRUGS (1)
  1. DOCETAXEL [Suspect]
     Indication: BREAST CANCER
     Dates: start: 20120529, end: 20120630

REACTIONS (4)
  - Diarrhoea [None]
  - Mucosal inflammation [None]
  - Leukopenia [None]
  - Pyrexia [None]
